FAERS Safety Report 5484802-9 (Version None)
Quarter: 2007Q4

REPORT INFORMATION
  Report Type: 
  Country: None (occurrence: None)
  Receive Date: 20071012
  Receipt Date: 20071004
  Transmission Date: 20080405
  Serious: Yes (Hospitalization)
  Sender: FDA-Public Use
  Company Number: DE-PFIZER INC-2007083779

PATIENT
  Sex: Male

DRUGS (1)
  1. SORTIS [Suspect]
     Dosage: DAILY DOSE:10MG
     Route: 048

REACTIONS (4)
  - DEAFNESS [None]
  - DEAFNESS PERMANENT [None]
  - INNER EAR INFLAMMATION [None]
  - TINNITUS [None]
